FAERS Safety Report 4912097-0 (Version None)
Quarter: 2006Q1

REPORT INFORMATION
  Report Type: 
  Country: None (occurrence: None)
  Receive Date: 20060213
  Receipt Date: 20060130
  Transmission Date: 20060701
  Serious: Yes (Other)
  Sender: FDA-Public Use
  Company Number: 2006018383

PATIENT
  Sex: 0

DRUGS (3)
  1. ZITHROMAX [Suspect]
     Indication: ILL-DEFINED DISORDER
     Dosage: 500 MG ORAL
     Route: 048
     Dates: start: 20060128
  2. TAMIFLU [Concomitant]
  3. CALONAL          (PARACETAMOL) [Concomitant]

REACTIONS (1)
  - ENTEROCOLITIS HAEMORRHAGIC [None]
